FAERS Safety Report 15486818 (Version 1)
Quarter: 2018Q4

REPORT INFORMATION
  Report Type: Spontaneous
  Country: US (occurrence: US)
  Receive Date: 20181011
  Receipt Date: 20181011
  Transmission Date: 20190205
  Serious: No
  Sender: FDA-Public Use
  Company Number: US-ACLARIS THERAPEUTICS-2018US006799

PATIENT
  Sex: Male

DRUGS (1)
  1. ESKATA [Suspect]
     Active Substance: HYDROGEN PEROXIDE
     Indication: SKIN LESION
     Dosage: 1 DF, 4 TIMES
     Route: 061

REACTIONS (1)
  - Application site burn [Unknown]
